FAERS Safety Report 26186987 (Version 1)
Quarter: 2025Q4

REPORT INFORMATION
  Report Type: Spontaneous
  Country: EU (occurrence: EU)
  Receive Date: 20251222
  Receipt Date: 20251222
  Transmission Date: 20260118
  Serious: Yes (Other)
  Sender: REGENERON
  Company Number: EU-BAYER-2025A166274

PATIENT
  Age: 62 Year
  Sex: Female

DRUGS (1)
  1. EYLEA HD [Suspect]
     Active Substance: AFLIBERCEPT
     Indication: Diabetic retinal oedema
     Dosage: ONCE, LEFT EYE, 114.3 MG/ML
     Dates: start: 20251111, end: 20251111

REACTIONS (3)
  - Visual impairment [Unknown]
  - Anterior chamber inflammation [Unknown]
  - Anterior chamber flare [Unknown]
